FAERS Safety Report 16314255 (Version 1)
Quarter: 2019Q2

REPORT INFORMATION
  Report Type: Report from Study
  Country: CN (occurrence: CN)
  Receive Date: 20190515
  Receipt Date: 20190515
  Transmission Date: 20190711
  Serious: Yes (Life-Threatening)
  Sender: FDA-Public Use
  Company Number: CN-PFIZER INC-2019203833

PATIENT

DRUGS (3)
  1. ACLARUBICIN [Suspect]
     Active Substance: ACLARUBICIN
     Indication: ACUTE MYELOID LEUKAEMIA REFRACTORY
     Dosage: 10 MG/M2, CYCLIC (D3-6, LOW DOSE)
  2. CYTARABINE. [Suspect]
     Active Substance: CYTARABINE
     Indication: ACUTE MYELOID LEUKAEMIA REFRACTORY
     Dosage: 10 MG/M2, CYCLIC (D1-14, LOW DOSE)
  3. DECITABINE. [Suspect]
     Active Substance: DECITABINE
     Indication: ACUTE MYELOID LEUKAEMIA REFRACTORY
     Dosage: 15 MG/M2, CYCLIC (D1, LOW DOSE)

REACTIONS (1)
  - Bone marrow failure [Unknown]
